FAERS Safety Report 9651143 (Version 7)
Quarter: 2016Q4

REPORT INFORMATION
  Report Type: Report from Study
  Country: JP (occurrence: JP)
  Receive Date: 20131029
  Receipt Date: 20161019
  Transmission Date: 20170207
  Serious: Yes (Death, Hospitalization, Other)
  Sender: FDA-Public Use
  Company Number: PHHO2012JP010365

PATIENT
  Age: 71 Year
  Sex: Male
  Weight: 64 kg

DRUGS (37)
  1. LOXOPROFEN [Concomitant]
     Active Substance: LOXOPROFEN
     Indication: BACK PAIN
     Dosage: 60 MG, UNK
     Route: 048
     Dates: start: 20040804
  2. POSTERISAN [Concomitant]
     Active Substance: LIDOCAINE
     Dosage: TD
     Dates: start: 19960611
  3. FAMOSTAGINE [Concomitant]
     Active Substance: FAMOTIDINE
     Indication: GASTRITIS
     Dosage: 20 MG, UNK
     Route: 048
     Dates: start: 20121116, end: 20130507
  4. URDESTON [Concomitant]
     Indication: HEPATOCELLULAR CARCINOMA
     Dosage: 300 MG, UNK
     Route: 048
     Dates: start: 20121116, end: 20130825
  5. LONGERIL [Concomitant]
     Indication: HYPERTENSION
     Dosage: 10 MG, UNK
     Route: 048
     Dates: start: 20111208, end: 20130624
  6. NEUROTROPIN [Concomitant]
     Active Substance: NEUROTROPIN
     Indication: CERVICAL MYELOPATHY
     Dosage: 12 IU, UNK
     Route: 048
     Dates: start: 20110331
  7. GASMOTIN [Concomitant]
     Active Substance: MOSAPRIDE CITRATE
     Indication: DECREASED APPETITE
     Dosage: 15 MG, UNK
     Route: 048
     Dates: start: 20120915
  8. SPIRONOLACTONE. [Concomitant]
     Active Substance: SPIRONOLACTONE
     Indication: PLEURAL EFFUSION
     Dosage: 50 MG, UNK
     Route: 048
     Dates: start: 20120920
  9. MOSAPRIDE CITRATE [Concomitant]
     Active Substance: MOSAPRIDE CITRATE
     Indication: DECREASED APPETITE
     Dosage: 15 MG, UNK
     Route: 048
     Dates: start: 20130424, end: 20130825
  10. BAYASPIRIN [Concomitant]
     Active Substance: ASPIRIN
     Indication: MYOCARDIAL INFARCTION
     Dosage: 100 MG, UNK
     Route: 048
     Dates: start: 20110421
  11. MEDEPOLIN [Concomitant]
     Active Substance: ALPRAZOLAM
     Indication: ANXIETY DISORDER
     Dosage: 0.4 MG, UNK
     Route: 048
     Dates: start: 20110421
  12. OPALMON [Concomitant]
     Active Substance: LIMAPROST
     Indication: CERVICAL MYELOPATHY
     Dosage: 15 UG, UNK
     Route: 048
     Dates: start: 20110331
  13. MUCOSTA [Concomitant]
     Active Substance: REBAMIPIDE
     Indication: GASTRITIS PROPHYLAXIS
     Dosage: UNK
     Route: 048
     Dates: start: 20120827
  14. MOSAPRIDE CITRATE [Concomitant]
     Active Substance: MOSAPRIDE CITRATE
     Dosage: 15 MG, QD
     Dates: start: 20130724
  15. MAGNESIUM OXIDE. [Concomitant]
     Active Substance: MAGNESIUM OXIDE
     Indication: CONSTIPATION
     Dosage: 1 G, UNK
     Route: 048
     Dates: start: 20110420, end: 20121003
  16. PLACEBO [Suspect]
     Active Substance: UNSPECIFIED INGREDIENT
     Indication: CARDIOVASCULAR EVENT PROPHYLAXIS
     Dosage: DOUBLE BLINDED
     Route: 058
     Dates: start: 20120111, end: 20120411
  17. EPENARD [Concomitant]
     Indication: BACK PAIN
     Dosage: 150 MG, UNK
     Route: 048
     Dates: start: 20110420
  18. GASCON [Concomitant]
     Active Substance: DIMETHICONE
     Indication: CHRONIC GASTRITIS
     Dosage: 120 MG, UNK
     Route: 048
     Dates: start: 20120306, end: 20120306
  19. AMLODIPINE [Concomitant]
     Active Substance: AMLODIPINE BESYLATE
     Indication: HYPERTENSION
     Dosage: 10 MG, UNK
     Route: 048
     Dates: start: 20081212
  20. METHYCOBAL [Concomitant]
     Active Substance: METHYLCOBALAMIN
     Indication: CERVICAL MYELOPATHY
     Dosage: 1500 UG, UNK
     Route: 048
     Dates: start: 20110331, end: 20110331
  21. OMEPRAZOLE. [Concomitant]
     Active Substance: OMEPRAZOLE
     Indication: CHRONIC GASTRITIS
     Dosage: 20 MG, UNK
     Route: 048
     Dates: start: 20120303, end: 20120303
  22. DEXALTIN [Concomitant]
     Active Substance: DEXAMETHASONE
     Dosage: TD
     Dates: start: 20050119
  23. FUROSEMIDE. [Concomitant]
     Active Substance: FUROSEMIDE
     Indication: PLEURAL EFFUSION
     Dosage: 20 MG, UNK
     Route: 048
     Dates: start: 20121117, end: 20130825
  24. PANPYOTIN [Concomitant]
     Indication: CONSTIPATION
     Dosage: 1 G, UNK
     Route: 048
     Dates: start: 20051005, end: 20121003
  25. MOHRUS [Concomitant]
     Active Substance: KETOPROFEN
     Indication: BACK PAIN
     Dosage: TD
     Route: 062
     Dates: start: 20080813
  26. MOHRUS [Concomitant]
     Active Substance: KETOPROFEN
     Dosage: TD
     Dates: start: 20110331
  27. NITOROL [Concomitant]
     Active Substance: ISOSORBIDE DINITRATE
     Indication: POSTINFARCTION ANGINA
     Dosage: 1.25 MG, (IH)
     Route: 055
     Dates: start: 20040929
  28. HALCION [Concomitant]
     Active Substance: TRIAZOLAM
     Indication: INSOMNIA
     Dosage: 0.25 MG, UNK
     Route: 048
     Dates: start: 20110331
  29. SOLDANA [Concomitant]
     Indication: CONSTIPATION
     Dosage: UNK
     Route: 048
     Dates: start: 20120827
  30. PLACEBO [Suspect]
     Active Substance: UNSPECIFIED INGREDIENT
     Dosage: DOUBLE BLINDED
     Route: 058
     Dates: start: 20120711
  31. ULCERLMIN [Concomitant]
     Active Substance: SUCRALFATE
     Indication: CHRONIC GASTRITIS
     Dosage: 3 G, UNK
     Route: 048
     Dates: start: 19960530, end: 20121003
  32. ANTAPENTAN [Concomitant]
     Indication: ECZEMA
     Dosage: TD
     Route: 062
     Dates: start: 20120218
  33. LULICON [Concomitant]
     Active Substance: LULICONAZOLE
     Indication: DERMATOPHYTOSIS OF NAIL
     Dosage: TD
     Dates: start: 20120218
  34. APHTASOLON [Concomitant]
     Indication: STOMATITIS
     Dosage: UNK
     Route: 062
     Dates: start: 20120511
  35. FUROSEMIDE. [Concomitant]
     Active Substance: FUROSEMIDE
     Dosage: 20 MG, QD
     Dates: start: 20130725
  36. URDESTON [Concomitant]
     Dosage: 300 MG, QD
     Dates: start: 20130724
  37. HINOPORON [Concomitant]
     Indication: STOMATITIS
     Dosage: TD
     Route: 062
     Dates: start: 20130410

REACTIONS (2)
  - Hepatic cancer recurrent [Fatal]
  - Hepatocellular carcinoma [Recovering/Resolving]

NARRATIVE: CASE EVENT DATE: 20120628
